FAERS Safety Report 10377731 (Version 2)
Quarter: 2014Q3

REPORT INFORMATION
  Report Type: Report from Study
  Country: BR (occurrence: BR)
  Receive Date: 20140812
  Receipt Date: 20140823
  Transmission Date: 20150326
  Serious: Yes (Hospitalization, Disabling, Other)
  Sender: FDA-Public Use
  Company Number: PHHY2014BR099110

PATIENT
  Age: 86 Year
  Sex: Male
  Weight: 60 kg

DRUGS (11)
  1. BROMOPRIDE [Concomitant]
     Active Substance: BROMOPRIDE
     Indication: VOMITING
     Dosage: UNK UKN, UNK
     Dates: start: 20140417
  2. AAS [Concomitant]
     Active Substance: ASPIRIN
     Indication: HYPERTENSION
     Dosage: UNK UKN, UNK
     Dates: start: 201301
  3. EXELON PATCH [Suspect]
     Active Substance: RIVASTIGMINE
     Dosage: UNK UKN, UNK
  4. RANITIDINE [Concomitant]
     Active Substance: RANITIDINE\RANITIDINE HYDROCHLORIDE
     Indication: PROPHYLAXIS
     Dosage: UNK UKN, UNK (ON AN EMPTY STOMACH)
     Dates: start: 20140417
  5. VITAMIN C [Concomitant]
     Active Substance: ASCORBIC ACID
     Dosage: UNK UKN, UNK
     Dates: start: 20140417
  6. EXELON [Suspect]
     Active Substance: RIVASTIGMINE TARTRATE
     Dosage: UNK UKN, UNK
     Route: 048
  7. DONAREM [Concomitant]
     Dosage: UNK UKN, UNK
     Dates: start: 20140417
  8. EXELON [Suspect]
     Active Substance: RIVASTIGMINE TARTRATE
     Indication: DEMENTIA ALZHEIMER^S TYPE
     Dosage: 2 DF (2 TABLETS), DAILY
     Route: 048
  9. PURAN [Concomitant]
     Active Substance: LEVOTHYROXINE SODIUM
     Indication: HYPOTHYROIDISM
     Dosage: UNK UKN, UNK
     Dates: start: 201301
  10. TEGRETOL XR [Concomitant]
     Active Substance: CARBAMAZEPINE
     Indication: CONVULSION
     Dosage: UNK UKN, UNK
     Dates: start: 20140417
  11. BROMOPRIDE [Concomitant]
     Active Substance: BROMOPRIDE
     Indication: NAUSEA

REACTIONS (4)
  - Hip fracture [Not Recovered/Not Resolved]
  - Loss of consciousness [Recovering/Resolving]
  - Urinary tract infection [Recovered/Resolved]
  - Fall [Not Recovered/Not Resolved]

NARRATIVE: CASE EVENT DATE: 20140707
